FAERS Safety Report 18545737 (Version 1)
Quarter: 2020Q4

REPORT INFORMATION
  Report Type: Spontaneous
  Country: US (occurrence: US)
  Receive Date: 20201125
  Receipt Date: 20201125
  Transmission Date: 20210114
  Serious: Yes (Hospitalization)
  Sender: FDA-Public Use
  Company Number: None

PATIENT
  Age: 64 Year
  Sex: Female
  Weight: 76 kg

DRUGS (3)
  1. AMIODARONE 200 MG BY MOUTH THREE TIMES DAILY [Suspect]
     Active Substance: AMIODARONE
     Route: 048
     Dates: start: 20201015
  2. FUROSEMIDE 40 MG BY MOUTH DAILY [Suspect]
     Active Substance: FUROSEMIDE
     Route: 048
     Dates: start: 20201016, end: 20201122
  3. AUBAGIO [Suspect]
     Active Substance: TERIFLUNOMIDE
     Indication: MULTIPLE SCLEROSIS
     Route: 048
     Dates: start: 20200201, end: 20201122

REACTIONS (8)
  - Pyrexia [None]
  - Diarrhoea [None]
  - Pancreatitis acute [None]
  - Nausea [None]
  - Cholelithiasis [None]
  - White blood cell count increased [None]
  - Atrial fibrillation [None]
  - Vomiting [None]

NARRATIVE: CASE EVENT DATE: 20201122
